FAERS Safety Report 5569336-5 (Version None)
Quarter: 2007Q4

REPORT INFORMATION
  Report Type: 
  Country: None (occurrence: None)
  Receive Date: 20071220
  Receipt Date: 20071024
  Transmission Date: 20080405
  Serious: No
  Sender: FDA-Public Use
  Company Number: A0690591A

PATIENT
  Age: 74 Year
  Sex: Male

DRUGS (1)
  1. AVODART [Suspect]
     Indication: PROSTATIC DISORDER
     Route: 048

REACTIONS (2)
  - ADVERSE DRUG REACTION [None]
  - THERAPEUTIC RESPONSE UNEXPECTED [None]
